FAERS Safety Report 8460484-9 (Version None)
Quarter: 2012Q2

REPORT INFORMATION
  Report Type: 
  Country: None (occurrence: None)
  Receive Date: 20120622
  Receipt Date: 20120614
  Transmission Date: 20120825
  Serious: Yes (Other)
  Sender: FDA-Public Use
  Company Number: US-ABBOTT-12P-163-0946537-00

PATIENT
  Age: 65 Year
  Sex: Female

DRUGS (4)
  1. METHOTREXATE [Concomitant]
     Indication: RHEUMATOID ARTHRITIS
  2. HUMIRA [Suspect]
     Indication: RHEUMATOID ARTHRITIS
     Dates: start: 20060101
  3. NORCO [Concomitant]
     Indication: PAIN
     Dosage: 7.5/325 1 TAB EVERY 4 HOURS
  4. FOLIC ACID [Concomitant]
     Indication: PRODUCT USED FOR UNKNOWN INDICATION
     Dosage: 2 TABS 6 DAYS A WEEK (EXCEPT NOT ON DAY OF METHOTREXATE)

REACTIONS (17)
  - MYOCARDIAL INFARCTION [None]
  - PRECANCEROUS CELLS PRESENT [None]
  - WRIST FRACTURE [None]
  - PRURITUS [None]
  - PAIN IN EXTREMITY [None]
  - PAIN IN JAW [None]
  - LACERATION [None]
  - RASH MACULO-PAPULAR [None]
  - SKIN EXFOLIATION [None]
  - CORONARY ARTERY OCCLUSION [None]
  - FALL [None]
  - INJECTION SITE PAIN [None]
  - PILOERECTION [None]
  - VAGINAL CYST [None]
  - BONE PAIN [None]
  - DEPRESSION [None]
  - RASH [None]
